FAERS Safety Report 4891858-0 (Version None)
Quarter: 2006Q1

REPORT INFORMATION
  Report Type: 
  Country: None (occurrence: None)
  Receive Date: 20060126
  Receipt Date: 20060105
  Transmission Date: 20060701
  Serious: Yes (Hospitalization)
  Sender: FDA-Public Use
  Company Number: IT-ABBOTT-06P-083-0321331-00

PATIENT
  Sex: Female
  Weight: 106 kg

DRUGS (6)
  1. HUMIRA [Suspect]
     Indication: RHEUMATOID ARTHRITIS
     Route: 058
     Dates: start: 20040824
  2. HUMIRA [Suspect]
     Dates: start: 20060104
  3. NAPROXEN [Concomitant]
     Indication: RHEUMATOID ARTHRITIS
     Dates: start: 20050808
  4. OMEPRAZOLE [Concomitant]
     Indication: GASTROOESOPHAGEAL REFLUX DISEASE
     Dates: start: 20050501
  5. CLONIDINE HCL [Concomitant]
     Indication: HYPERTENSION
  6. NEOSTAN PLUS [Concomitant]
     Indication: HYPERTENSION
     Dates: start: 20010101, end: 20051212

REACTIONS (5)
  - CAROTID ARTERY ATHEROMA [None]
  - CHEST PAIN [None]
  - GLUCOSE TOLERANCE IMPAIRED [None]
  - HYPERTENSIVE CRISIS [None]
  - OBESITY [None]
